FAERS Safety Report 5571229-4 (Version None)
Quarter: 2007Q4

REPORT INFORMATION
  Report Type: 
  Country: None (occurrence: None)
  Receive Date: 20071221
  Receipt Date: 20070227
  Transmission Date: 20080405
  Serious: No
  Sender: FDA-Public Use
  Company Number: A0641159A

PATIENT
  Age: 33 Year
  Sex: Male

DRUGS (1)
  1. FLONASE [Suspect]
     Dosage: 4SPR FOUR TIMES PER DAY
     Route: 045
     Dates: start: 20070226

REACTIONS (2)
  - ACCIDENTAL OVERDOSE [None]
  - HEADACHE [None]
